FAERS Safety Report 8534116 (Version 4)
Quarter: 2012Q4

REPORT INFORMATION
  Report Type: 
  Country: US (occurrence: US)
  Receive Date: 20120427
  Receipt Date: 20121026
  Transmission Date: 20130627
  Serious: Yes (Death, Hospitalization)
  Sender: FDA-Public Use
  Company Number: US-GLAXOSMITHKLINE-A0886856A

PATIENT
  Age: 67 Year
  Sex: Male

DRUGS (1)
  1. AVANDAMET [Suspect]
     Indication: TYPE 2 DIABETES MELLITUS
     Route: 048
     Dates: start: 200303, end: 20051029

REACTIONS (4)
  - Myocardial infarction [Fatal]
  - Cardiopulmonary failure [Unknown]
  - Cerebrovascular accident [Unknown]
  - Coronary artery disease [Unknown]
